FAERS Safety Report 10111148 (Version 2)
Quarter: 2014Q3

REPORT INFORMATION
  Report Type: Spontaneous
  Country: US (occurrence: None)
  Receive Date: 20140421
  Receipt Date: 20140722
  Transmission Date: 20150326
  Serious: No
  Sender: FDA-Public Use
  Company Number: AEGR000272

PATIENT
  Age: 63 Year
  Sex: Female

DRUGS (6)
  1. ENALAPRIL ( ENALAPRIL) [Concomitant]
  2. FISH OIL ( FISH OIL) [Concomitant]
  3. METOPROLOL ( METOPROLOL TARTRATE) [Concomitant]
  4. JUXTAPID [Suspect]
     Active Substance: LOMITAPIDE MESYLATE
     Indication: PRODUCT USED FOR UNKNOWN INDICATION
     Dosage: 5 MG, UNK
     Dates: start: 201310, end: 201311
  5. ASA ( ACETYLSALICYLIC ACID) [Concomitant]
  6. PLAVIX ( CLOPIDOGREL BISULFATE) [Concomitant]

REACTIONS (4)
  - Pain [None]
  - Viral infection [None]
  - Product used for unknown indication [None]
  - Muscle spasms [None]

NARRATIVE: CASE EVENT DATE: 201310
